FAERS Safety Report 15587390 (Version 3)
Quarter: 2018Q4

REPORT INFORMATION
  Report Type: Spontaneous
  Country: US (occurrence: US)
  Receive Date: 20181105
  Receipt Date: 20181218
  Transmission Date: 20190205
  Serious: Yes (Other)
  Sender: FDA-Public Use
  Company Number: US-SUPERNUS PHARMACEUTICALS, INC.-2018SUP00315

PATIENT
  Age: 45 Year
  Sex: Female
  Weight: 116.55 kg

DRUGS (13)
  1. CARVEDILOL. [Suspect]
     Active Substance: CARVEDILOL
     Indication: HYPERTENSION
     Dosage: 25 MG, 2X/DAY IN THE MORNING AND IN THE EVENING
     Dates: start: 2017, end: 2018
  2. MELOXICAM. [Suspect]
     Active Substance: MELOXICAM
     Indication: BONE DISORDER
     Dosage: 15 MG, 1X/DAY
  3. MELOXICAM. [Suspect]
     Active Substance: MELOXICAM
     Indication: ARTHROPATHY
  4. UNSPECIFIED BLOOD PRESSURE MEDICATIONS [Suspect]
     Active Substance: UNSPECIFIED INGREDIENT
     Indication: HYPERTENSION
     Dosage: UNK
  5. GABAPENTIN. [Suspect]
     Active Substance: GABAPENTIN
     Indication: JOINT INJURY
     Dosage: UNK, 2X/DAY
  6. TROKENDI XR [Suspect]
     Active Substance: TOPIRAMATE
     Dosage: 75 MG, 1X/DAY IN THE MORNING
     Route: 048
  7. TROKENDI XR [Suspect]
     Active Substance: TOPIRAMATE
     Indication: MIGRAINE
     Dosage: 200 MG, 1X/DAY IN THE MORNING
     Route: 048
  8. MELATONIN [Concomitant]
     Active Substance: MELATONIN
     Dosage: 2 CAPSULES, 1X/DAY AT NIGHT
     Dates: start: 2017
  9. LORAZEPAM. [Concomitant]
     Active Substance: LORAZEPAM
     Dosage: 0.5 MG, 1X/DAY AT NIGHT
  10. CARVEDILOL. [Suspect]
     Active Substance: CARVEDILOL
     Dosage: 25 MG, 1X/DAY
     Dates: start: 2018, end: 20181028
  11. CARVEDILOL. [Suspect]
     Active Substance: CARVEDILOL
     Dosage: 25 MG, 2X/DAY
     Dates: start: 20181029
  12. TROKENDI XR [Suspect]
     Active Substance: TOPIRAMATE
     Indication: MIGRAINE
     Dosage: 50 MG, 1X/DAY IN THE MORNING
     Route: 048
  13. FIORICET [Concomitant]
     Active Substance: ACETAMINOPHEN\BUTALBITAL\CAFFEINE
     Dosage: 1 UNK

REACTIONS (25)
  - Visual impairment [Recovered/Resolved]
  - Headache [Recovered/Resolved]
  - Gait disturbance [Unknown]
  - Inflammation [Not Recovered/Not Resolved]
  - Peripheral swelling [Recovering/Resolving]
  - Musculoskeletal discomfort [Not Recovered/Not Resolved]
  - Vision blurred [Recovered/Resolved]
  - Arthralgia [Not Recovered/Not Resolved]
  - Feeling hot [Unknown]
  - Crying [Unknown]
  - Fibromyalgia [Unknown]
  - Somnolence [Recovered/Resolved]
  - Hypotension [Recovered/Resolved]
  - Drug ineffective [Recovered/Resolved]
  - Blood cholesterol increased [Unknown]
  - Weight increased [Not Recovered/Not Resolved]
  - Blood glucose abnormal [Unknown]
  - Insomnia [Not Recovered/Not Resolved]
  - Pain in extremity [Not Recovered/Not Resolved]
  - Migraine [Recovered/Resolved]
  - Product dose omission [Recovered/Resolved]
  - Dizziness [Recovered/Resolved]
  - Intraocular pressure test abnormal [Recovered/Resolved]
  - Pain [Not Recovered/Not Resolved]
  - Hypertension [Recovered/Resolved]

NARRATIVE: CASE EVENT DATE: 20180321
